FAERS Safety Report 18234406 (Version 1)
Quarter: 2020Q3

REPORT INFORMATION
  Report Type: Spontaneous
  Country: FR (occurrence: FR)
  Receive Date: 20200904
  Receipt Date: 20200904
  Transmission Date: 20201103
  Serious: Yes (Other)
  Sender: FDA-Public Use
  Company Number: FR-SA-2020SA237876

PATIENT

DRUGS (9)
  1. PREDNISONE. [Suspect]
     Active Substance: PREDNISONE
     Indication: IMMUNE THROMBOCYTOPENIA
     Dosage: 60 MG, QD
     Route: 048
     Dates: start: 20200426, end: 20200605
  2. AMLODIPINE [Suspect]
     Active Substance: AMLODIPINE BESYLATE
     Indication: HYPERTENSION
     Dosage: UNK UNK, QD
     Route: 048
     Dates: start: 20200426, end: 20200429
  3. FOLIC ACID. [Suspect]
     Active Substance: FOLIC ACID
     Indication: VITAMIN SUPPLEMENTATION
     Dosage: 5 MG, QD
     Route: 048
     Dates: start: 20200403, end: 20200505
  4. PREDNISONE. [Suspect]
     Active Substance: PREDNISONE
     Dosage: UNK
     Route: 065
  5. LANSOPRAZOLE. [Suspect]
     Active Substance: LANSOPRAZOLE
     Indication: HELICOBACTER GASTRITIS
     Dosage: 15 MG, QD
     Route: 048
     Dates: end: 20200405
  6. METFORMIN HYDROCHLORIDE. [Suspect]
     Active Substance: METFORMIN HYDROCHLORIDE
     Indication: TYPE 2 DIABETES MELLITUS
     Dosage: 2000 MG, QD
     Route: 048
  7. INSULIN LISPRO [Suspect]
     Active Substance: INSULIN LISPRO
     Indication: TYPE 2 DIABETES MELLITUS
     Dosage: 6 INTERNATIONAL UNIT, QD
     Route: 058
     Dates: end: 20200505
  8. PYLERA [Suspect]
     Active Substance: BISMUTH SUBCITRATE POTASSIUM\METRONIDAZOLE\TETRACYCLINE HYDROCHLORIDE
     Indication: HELICOBACTER INFECTION
     Dosage: UNK UNK, QD
     Route: 048
     Dates: start: 20200426, end: 20200505
  9. DISULONE [Suspect]
     Active Substance: DAPSONE\FERROUS OXALATE
     Indication: IMMUNE THROMBOCYTOPENIA
     Dosage: UNK UNK, QD
     Route: 048
     Dates: end: 20200409

REACTIONS (1)
  - Thrombotic microangiopathy [Recovered/Resolved]

NARRATIVE: CASE EVENT DATE: 20200426
